FAERS Safety Report 5399557-6 (Version None)
Quarter: 2007Q3

REPORT INFORMATION
  Report Type: 
  Country: None (occurrence: None)
  Receive Date: 20070727
  Receipt Date: 20070716
  Transmission Date: 20080115
  Serious: Yes (Other)
  Sender: FDA-Public Use
  Company Number: DE-PFIZER INC-2007058883

PATIENT
  Sex: Male

DRUGS (1)
  1. LYRICA [Suspect]
     Route: 048

REACTIONS (5)
  - DIPLOPIA [None]
  - EYE PAIN [None]
  - STRABISMUS [None]
  - UNEVALUABLE EVENT [None]
  - VISION BLURRED [None]
